FAERS Safety Report 18338216 (Version 1)
Quarter: 2020Q4

REPORT INFORMATION
  Report Type: Spontaneous
  Country: FR (occurrence: FR)
  Receive Date: 20201002
  Receipt Date: 20201002
  Transmission Date: 20210113
  Serious: Yes (Hospitalization)
  Sender: FDA-Public Use
  Company Number: FR-TEVA-2020-FR-1832828

PATIENT
  Age: 71 Year
  Sex: Male
  Weight: 85 kg

DRUGS (14)
  1. PACLITAXEL. [Suspect]
     Active Substance: PACLITAXEL
     Indication: LUNG SQUAMOUS CELL CARCINOMA STAGE IV
     Dosage: (C1 18-AUG-2020),UNIT DOSE  200MG/M2
     Route: 041
     Dates: start: 20200818
  2. STAGID 700 MG, COMPRIME SECABLE [Concomitant]
     Active Substance: METFORMIN PAMOATE
     Indication: TYPE 2 DIABETES MELLITUS
     Dosage: UNIT DOSE 2100MG,
     Route: 048
     Dates: end: 20200827
  3. VICTOZA [Concomitant]
     Active Substance: LIRAGLUTIDE
     Dosage: UNIT DOSE 1.8MG
     Route: 058
  4. PEMBROLIZUMAB. [Suspect]
     Active Substance: PEMBROLIZUMAB
     Indication: LUNG SQUAMOUS CELL CARCINOMA STAGE IV
     Dosage: (C1 18-AUG-2020),UNIT DOSE 200MG
     Route: 041
     Dates: start: 20200818
  5. VERSATIS 5 %, EMPLATRE MEDICAMENTEUX [Concomitant]
     Active Substance: LIDOCAINE
     Dosage: UNIT DOSE 2DF
     Route: 003
  6. PANTOPRAZOLE [Concomitant]
     Active Substance: PANTOPRAZOLE
     Dosage: UNIT DOSE 20MG
     Route: 048
  7. CARBOPLATINE [Suspect]
     Active Substance: CARBOPLATIN
     Indication: LUNG SQUAMOUS CELL CARCINOMA STAGE IV
     Dosage: (C1 18-AUG-2020),UNIT DOSE  781MG
     Route: 041
     Dates: start: 20200818
  8. GABAPENTINE [Concomitant]
     Active Substance: GABAPENTIN
     Indication: PAIN
     Dosage: UNIT DOSE 900MG
     Route: 048
     Dates: start: 20200818
  9. TAHOR [Concomitant]
     Active Substance: ATORVASTATIN CALCIUM
     Indication: DYSLIPIDAEMIA
     Dosage: UNIT DOSE 10MG
     Route: 048
  10. BACTRIM [Suspect]
     Active Substance: SULFAMETHOXAZOLE\TRIMETHOPRIM
     Indication: BRONCHITIS
     Dosage: UNIT DOSE 2DF
     Route: 048
     Dates: start: 20200811, end: 20200825
  11. SYMBICORT [Concomitant]
     Active Substance: BUDESONIDE\FORMOTEROL FUMARATE DIHYDRATE
     Dosage: UNIT DOSE 4DF
     Route: 055
  12. GLICLAZIDE [Concomitant]
     Active Substance: GLICLAZIDE
     Dosage: UNIT DOSE 30MG
     Route: 048
  13. XOLAIR [Concomitant]
     Active Substance: OMALIZUMAB
     Indication: ASTHMA-CHRONIC OBSTRUCTIVE PULMONARY DISEASE OVERLAP SYNDROME
     Route: 058
  14. LOVENOX [Concomitant]
     Active Substance: ENOXAPARIN SODIUM
     Dosage: UNIT DOSE 4000IU
     Route: 058

REACTIONS (3)
  - Vomiting [Recovered/Resolved]
  - Diarrhoea [Recovered/Resolved]
  - Acute kidney injury [Recovered/Resolved]

NARRATIVE: CASE EVENT DATE: 20200818
